FAERS Safety Report 8001482-9 (Version None)
Quarter: 2011Q4

REPORT INFORMATION
  Report Type: 
  Country: None (occurrence: None)
  Receive Date: 20111219
  Receipt Date: 20111208
  Transmission Date: 20120403
  Serious: Yes (Other)
  Sender: FDA-Public Use
  Company Number: 2011P1014046

PATIENT
  Sex: Female

DRUGS (2)
  1. HYDROCORTISONE [Suspect]
     Indication: ADRENAL INSUFFICIENCY
     Dosage: 20 MG;QD;PO, 40 MG;QD;PO
     Route: 048
  2. PREDNISONE TAB [Concomitant]

REACTIONS (4)
  - PRODUCT SUBSTITUTION ISSUE [None]
  - INTENTIONAL DRUG MISUSE [None]
  - DRUG EFFECT DECREASED [None]
  - UNEVALUABLE EVENT [None]
